FAERS Safety Report 8734602 (Version 2)
Quarter: 2012Q4

REPORT INFORMATION
  Report Type: 
  Country: US (occurrence: US)
  Receive Date: 20120821
  Receipt Date: 20120912
  Transmission Date: 20130627
  Serious: No
  Sender: FDA-Public Use
  Company Number: US-ASTRAZENECA-2012SE57667

PATIENT
  Age: 60 Year
  Sex: Female

DRUGS (1)
  1. SYMBICORT PMDI [Suspect]
     Dosage: BID
     Route: 055
     Dates: start: 2008

REACTIONS (5)
  - Dyspnoea [Unknown]
  - Pulmonary oedema [Unknown]
  - Drug dose omission [Unknown]
  - Atrial flutter [Unknown]
  - Nervousness [Unknown]
